FAERS Safety Report 6850626-0 (Version None)
Quarter: 2010Q3

REPORT INFORMATION
  Report Type: 
  Country: None (occurrence: None)
  Receive Date: 20100716
  Receipt Date: 20071018
  Transmission Date: 20110219
  Serious: Yes (Other)
  Sender: FDA-Public Use
  Company Number: US-PFIZER INC-2007088899

PATIENT
  Sex: Female
  Weight: 81.818 kg

DRUGS (4)
  1. CHANTIX [Suspect]
     Indication: SMOKING CESSATION THERAPY
     Dates: start: 20070929
  2. SYNTHROID [Concomitant]
     Indication: THYROID DISORDER
  3. VALTREX [Concomitant]
  4. CARBIDOPA AND LEVODOPA [Concomitant]

REACTIONS (7)
  - ARTHROPATHY [None]
  - ASTHENIA [None]
  - BURNING SENSATION [None]
  - MUSCLE DISORDER [None]
  - PAIN [None]
  - TREMOR [None]
  - VISION BLURRED [None]
